FAERS Safety Report 4728038-5 (Version None)
Quarter: 2005Q3

REPORT INFORMATION
  Report Type: 
  Country: None (occurrence: None)
  Receive Date: 20050725
  Receipt Date: 20050408
  Transmission Date: 20060218
  Serious: No
  Sender: FDA-Public Use
  Company Number: USA050495319

PATIENT
  Age: 49 Year
  Sex: Male
  Weight: 89 kg

DRUGS (6)
  1. STRATTERA [Suspect]
     Indication: ATTENTION DEFICIT/HYPERACTIVITY DISORDER
     Dosage: 40 MG/2 DAY
     Dates: start: 20050328
  2. EFFEXOR XR [Concomitant]
  3. OXYCODONE HCL [Concomitant]
  4. NEURONTIN [Concomitant]
  5. ZIAC [Concomitant]
  6. LIPITOR [Concomitant]

REACTIONS (6)
  - CONSTIPATION [None]
  - DRY EYE [None]
  - DRY MOUTH [None]
  - ENDODONTIC PROCEDURE [None]
  - PROCEDURAL PAIN [None]
  - SHOULDER OPERATION [None]
